FAERS Safety Report 6245464-6 (Version None)
Quarter: 2009Q2

REPORT INFORMATION
  Report Type: 
  Country: None (occurrence: None)
  Receive Date: 20090625
  Receipt Date: 20090617
  Transmission Date: 20091009
  Serious: Yes (Other)
  Sender: FDA-Public Use
  Company Number: PHHY2009CA24667

PATIENT

DRUGS (1)
  1. ACLASTA [Suspect]
     Dosage: 5 MG ONCE YEARLY
     Route: 042
     Dates: start: 20090101

REACTIONS (2)
  - CARDIAC DISORDER [None]
  - LUNG DISORDER [None]
